FAERS Safety Report 5104096-3 (Version None)
Quarter: 2006Q3

REPORT INFORMATION
  Report Type: 
  Country: None (occurrence: None)
  Receive Date: 20060913
  Receipt Date: 20060905
  Transmission Date: 20061208
  Serious: Yes (Hospitalization)
  Sender: FDA-Public Use
  Company Number: FR-BOEHRINGER INGELHEIM PHARMACEUTICALS, INC.-2006-FF-00788FF

PATIENT
  Age: 77 Year
  Sex: Male

DRUGS (4)
  1. ASASANTINE LP [Suspect]
     Route: 048
  2. COZAAR [Concomitant]
     Route: 048
  3. AMLOR [Concomitant]
     Route: 048
  4. NAXY [Concomitant]
     Indication: LUNG DISORDER
     Route: 048
     Dates: start: 20060807, end: 20060811

REACTIONS (3)
  - ANXIETY [None]
  - HALLUCINATION [None]
  - NIGHTMARE [None]
